FAERS Safety Report 8739128 (Version 2)
Quarter: 2012Q4

REPORT INFORMATION
  Report Type: 
  Country: FR (occurrence: FR)
  Receive Date: 20120823
  Receipt Date: 20120830
  Transmission Date: 20130627
  Serious: Yes (Hospitalization)
  Sender: FDA-Public Use
  Company Number: FR-SANOFI-AVENTIS-2012SA058284

PATIENT
  Age: 64 Year
  Sex: Male

DRUGS (7)
  1. LASIX [Suspect]
     Indication: DRUG USE FOR UNKNOWN INDICATION
     Route: 048
     Dates: start: 201108, end: 20120614
  2. APROVEL [Suspect]
     Indication: NON ST SEGMENT ELEVATION ACUTE CORONARY SYNDROME
     Route: 048
     Dates: start: 20120406, end: 20120614
  3. PROPRANOLOL [Suspect]
     Indication: DRUG USE FOR UNKNOWN INDICATION
     Route: 048
     Dates: start: 201105, end: 20120614
  4. TAHOR [Suspect]
     Indication: DRUG USE FOR UNKNOWN INDICATION
     Route: 048
     Dates: start: 201105, end: 20120614
  5. PLAVIX [Concomitant]
     Indication: NON ST SEGMENT ELEVATION ACUTE CORONARY SYNDROME
     Route: 048
  6. LANTUS [Concomitant]
     Indication: TYPE 1 DIABETES MELLITUS
     Route: 058
     Dates: start: 201201
  7. NOVORAPID [Concomitant]
     Indication: TYPE 1 DIABETES MELLITUS
     Route: 058
     Dates: start: 201201

REACTIONS (2)
  - Rhabdomyolysis [Recovered/Resolved]
  - Renal failure acute [Recovered/Resolved]
